FAERS Safety Report 5233310-9 (Version None)
Quarter: 2007Q1

REPORT INFORMATION
  Report Type: 
  Country: None (occurrence: None)
  Receive Date: 20070206
  Receipt Date: 20070129
  Transmission Date: 20070707
  Serious: Yes (Hospitalization)
  Sender: FDA-Public Use
  Company Number: 2007US000052

PATIENT
  Age: 71 Year
  Sex: Male
  Weight: 106.6 kg

DRUGS (1)
  1. VESICARE [Suspect]
     Indication: POLLAKIURIA
     Dosage: 5MG, UID/QD, ORAL
     Route: 048
     Dates: start: 20061204

REACTIONS (1)
  - MYOCARDIAL INFARCTION [None]
